FAERS Safety Report 8990845 (Version 1)
Quarter: 2012Q4

REPORT INFORMATION
  Report Type: Spontaneous
  Country: US (occurrence: None)
  Receive Date: 20121226
  Receipt Date: 20121226
  Transmission Date: 20130627
  Serious: Yes (Other)
  Sender: FDA-Public Use
  Company Number: None

PATIENT
  Age: 75 Year
  Sex: Female
  Weight: 58.06 kg

DRUGS (8)
  1. LEVOFLOXACIN [Suspect]
     Indication: BRONCHITIS
     Dosage: 1 Tab once a day po
     Route: 048
     Dates: start: 20121212, end: 20121218
  2. LEVOFLOXACIN [Suspect]
     Indication: FLU
     Dosage: 1 Tab once a day po
     Route: 048
     Dates: start: 20121212, end: 20121218
  3. SIMBICORT [Concomitant]
  4. ALBUTERAL [Concomitant]
  5. CARDIA [Concomitant]
  6. SYNTHROID [Concomitant]
  7. INTEGRA PLUS [Concomitant]
  8. MIRALAX [Concomitant]

REACTIONS (2)
  - Pain in extremity [None]
  - Joint range of motion decreased [None]
